FAERS Safety Report 7985748-4 (Version None)
Quarter: 2011Q4

REPORT INFORMATION
  Report Type: 
  Country: None (occurrence: None)
  Receive Date: 20111214
  Receipt Date: 20111209
  Transmission Date: 20120403
  Serious: Yes (Death)
  Sender: FDA-Public Use
  Company Number: 2011SP057865

PATIENT
  Age: 65 Year
  Sex: Male

DRUGS (4)
  1. MIRTAZAPINE [Suspect]
     Indication: DEPRESSION
     Dosage: 15 MG;QD;PO, 22.5 MG;QD;PO
     Route: 048
  2. BROMAZEPAM [Concomitant]
  3. DULOXETINE HYDROCHLORIDE [Concomitant]
  4. HYDROCHLORIDE [Concomitant]

REACTIONS (4)
  - LETHARGY [None]
  - INSOMNIA [None]
  - COMPLETED SUICIDE [None]
  - DEPRESSIVE SYMPTOM [None]
